FAERS Safety Report 20961461 (Version 1)
Quarter: 2022Q2

REPORT INFORMATION
  Report Type: Spontaneous
  Country: JP (occurrence: JP)
  Receive Date: 20220615
  Receipt Date: 20220615
  Transmission Date: 20220721
  Serious: Yes (Other)
  Sender: FDA-Public Use
  Company Number: JP-SA-2020SA321951

PATIENT
  Sex: Female

DRUGS (1)
  1. HERBESSER [Suspect]
     Active Substance: DILTIAZEM HYDROCHLORIDE
     Indication: Microvascular coronary artery disease
     Route: 048

REACTIONS (7)
  - Angina pectoris [Unknown]
  - Back pain [Unknown]
  - Arthralgia [Unknown]
  - Swelling [Unknown]
  - Face oedema [Unknown]
  - Oedema peripheral [Unknown]
  - Dizziness [Unknown]
